FAERS Safety Report 18731747 (Version 1)
Quarter: 2021Q1

REPORT INFORMATION
  Report Type: Report from Study
  Country: BR (occurrence: BR)
  Receive Date: 20210112
  Receipt Date: 20210112
  Transmission Date: 20210419
  Serious: Yes (Death)
  Sender: FDA-Public Use
  Company Number: BR-BAYER-2021-021361

PATIENT

DRUGS (1)
  1. RIOCIGUAT (GUANYLATE CYCLASE STIMULATOR) [Suspect]
     Active Substance: RIOCIGUAT

REACTIONS (1)
  - Death [Fatal]

NARRATIVE: CASE EVENT DATE: 20200903
